FAERS Safety Report 6508560-1 (Version None)
Quarter: 2009Q4

REPORT INFORMATION
  Report Type: 
  Country: None (occurrence: None)
  Receive Date: 20091221
  Receipt Date: 20091208
  Transmission Date: 20100525
  Serious: Yes (Hospitalization, Other)
  Sender: FDA-Public Use
  Company Number: BR-ELI_LILLY_AND_COMPANY-BR200911004540

PATIENT
  Sex: Male
  Weight: 70 kg

DRUGS (4)
  1. CIALIS [Suspect]
     Indication: ERECTILE DYSFUNCTION
     Dosage: 20 MG, AS NEEDED
     Route: 048
  2. MONOCORDIL [Concomitant]
     Dosage: 20 MG, 2/D
     Route: 065
  3. AAS [Concomitant]
     Dosage: UNK, DAILY (1/D)
     Route: 065
  4. PRAVASTATINA [Concomitant]
     Dosage: 20 MG, QOD
     Route: 065

REACTIONS (8)
  - ABDOMINAL PAIN [None]
  - BACK PAIN [None]
  - BENIGN NEOPLASM OF PROSTATE [None]
  - GASTROINTESTINAL DISORDER [None]
  - MYALGIA [None]
  - NECK PAIN [None]
  - OFF LABEL USE [None]
  - PROSTATIC SPECIFIC ANTIGEN INCREASED [None]
